FAERS Safety Report 5890011-1 (Version None)
Quarter: 2008Q3

REPORT INFORMATION
  Report Type: 
  Country: None (occurrence: None)
  Receive Date: 20080919
  Receipt Date: 20080908
  Transmission Date: 20090109
  Serious: Yes (Other)
  Sender: FDA-Public Use
  Company Number: GB-GILEAD-2008-0018144

PATIENT
  Age: 44 Year
  Sex: Male

DRUGS (5)
  1. EMTRIVA [Suspect]
     Indication: HIV INFECTION
  2. EFAVIRENZ [Suspect]
     Indication: HIV INFECTION
  3. LOPINAVIR [Suspect]
     Indication: HIV INFECTION
  4. AZATHIOPRINE [Suspect]
     Indication: GLOMERULONEPHRITIS
  5. PREDNISOLONE [Suspect]
     Indication: GLOMERULONEPHRITIS MEMBRANOUS

REACTIONS (2)
  - OSTEOMYELITIS [None]
  - SALMONELLOSIS [None]
